FAERS Safety Report 10886527 (Version 2)
Quarter: 2015Q1

REPORT INFORMATION
  Report Type: Spontaneous
  Country: JP (occurrence: JP)
  Receive Date: 20150304
  Receipt Date: 20150317
  Transmission Date: 20150721
  Serious: Yes (Disabling)
  Sender: FDA-Public Use
  Company Number: JP-GLAXOSMITHKLINE-JP2015JPN017147

PATIENT
  Age: 87 Year
  Sex: Male
  Weight: 43 kg

DRUGS (9)
  1. REBAMIPIDE [Concomitant]
     Active Substance: REBAMIPIDE
     Dosage: 100 MG, QD
  2. MONTELUKAST [Concomitant]
     Active Substance: MONTELUKAST SODIUM
     Dosage: 10 MG, QD
  3. TULOBUTEROL [Concomitant]
     Active Substance: TULOBUTEROL
     Dosage: 2 MG, QD
  4. FLUTICASONE FUROATE + VILANTEROL TRIFENATATE [Suspect]
     Active Substance: FLUTICASONE FUROATE\VILANTEROL TRIFENATATE
     Dosage: 1 DF, QD
     Route: 055
     Dates: start: 20150107, end: 20150206
  5. SERETIDE [Suspect]
     Active Substance: FLUTICASONE FUROATE\SALMETEROL XINAFOATE
     Dosage: UNK
     Route: 055
     Dates: start: 20150207
  6. CALONAL [Concomitant]
     Active Substance: ACETAMINOPHEN
     Dosage: 200 MG, BID
  7. SERETIDE [Suspect]
     Active Substance: FLUTICASONE FUROATE\SALMETEROL XINAFOATE
     Dosage: UNK UNK, BID
     Route: 055
     Dates: end: 20150107
  8. GLYCERIN. [Concomitant]
     Active Substance: GLYCERIN
     Dosage: 60 MG, UNK
     Route: 054
  9. LEVOFLOXACIN HEMIHYDRATE [Concomitant]
     Active Substance: LEVOFLOXACIN
     Indication: TRICHIASIS
     Dosage: 2 DF, TID
     Dates: start: 20150130

REACTIONS (3)
  - Intraocular pressure increased [Recovering/Resolving]
  - Visual acuity reduced [Recovered/Resolved]
  - Intraocular pressure increased [Not Recovered/Not Resolved]

NARRATIVE: CASE EVENT DATE: 20150129
